FAERS Safety Report 9398898 (Version 1)
Quarter: 2013Q3

REPORT INFORMATION
  Report Type: Spontaneous
  Country: US (occurrence: US)
  Receive Date: 20130712
  Receipt Date: 20130712
  Transmission Date: 20140515
  Serious: Yes (Hospitalization)
  Sender: FDA-Public Use
  Company Number: US-PFIZER INC-2013201912

PATIENT
  Age: 68 Year
  Sex: Female
  Weight: 62.59 kg

DRUGS (22)
  1. XELJANZ [Suspect]
     Indication: RHEUMATOID ARTHRITIS
     Dosage: 5 MG, 2X/DAY
     Route: 048
     Dates: start: 2013
  2. PERCOCET [Suspect]
     Indication: BACK DISORDER
     Dosage: UNK
  3. METHOTREXATE [Concomitant]
     Dosage: UNK
  4. PRILOSEC [Concomitant]
     Dosage: UNK
  5. ACTOS [Concomitant]
     Dosage: UNK
  6. ALLEGRA [Concomitant]
     Dosage: UNK
  7. ATIVAN [Concomitant]
     Dosage: UNK
  8. CALCITRIOL [Concomitant]
     Dosage: UNK
  9. CENTRUM SILVER [Concomitant]
     Dosage: UNK
  10. CYMBALTA [Concomitant]
     Dosage: UNK
  11. ESTRADIOL [Concomitant]
     Dosage: UNK
  12. FISH OIL [Concomitant]
     Dosage: UNK
  13. FLEXERIL [Concomitant]
     Dosage: UNK
  14. HUMALOG [Concomitant]
     Dosage: UNK
  15. LANTUS [Concomitant]
     Dosage: UNK
  16. LEVOTHYROXINE [Concomitant]
     Dosage: UNK
  17. LORTAB [Concomitant]
     Dosage: UNK
  18. LYRICA [Concomitant]
     Dosage: UNK
  19. MAXIDONE [Concomitant]
     Dosage: UNK
  20. PROMETRIUM [Concomitant]
     Dosage: UNK
  21. TOPROL XL [Concomitant]
     Dosage: UNK
  22. DAGISEM [Concomitant]
     Dosage: UNK

REACTIONS (2)
  - Fall [Unknown]
  - Balance disorder [Unknown]
